FAERS Safety Report 4286064-7 (Version None)
Quarter: 2004Q1

REPORT INFORMATION
  Report Type: 
  Country: None (occurrence: None)
  Receive Date: 20040203
  Receipt Date: 20040122
  Transmission Date: 20041129
  Serious: Yes (Other)
  Sender: FDA-Public Use
  Company Number: 2004004686

PATIENT
  Age: 53 Year
  Sex: Female
  Weight: 75.7507 kg

DRUGS (6)
  1. NEURONTIN [Suspect]
     Indication: NEUROPATHY PERIPHERAL
     Dosage: DAILY , ORAL
     Route: 048
     Dates: start: 20010401
  2. PREDNISONE [Suspect]
     Indication: VASCULITIS
     Dates: start: 20030101
  3. LEVOTHYROXINE SODIUM [Concomitant]
  4. ESTROGENS CONJUGATED [Concomitant]
  5. CELECOXIB [Concomitant]
  6. ACETYLSALICYLIC ACID SRT [Concomitant]

REACTIONS (8)
  - BALANCE DISORDER [None]
  - COGNITIVE DISORDER [None]
  - COORDINATION ABNORMAL [None]
  - DIZZINESS [None]
  - NEUROPATHY PERIPHERAL [None]
  - SOMNOLENCE [None]
  - VASCULITIS [None]
  - WEIGHT INCREASED [None]
